FAERS Safety Report 23941001 (Version 3)
Quarter: 2024Q3

REPORT INFORMATION
  Report Type: Spontaneous
  Country: US (occurrence: None)
  Receive Date: 20240605
  Receipt Date: 20240704
  Transmission Date: 20241017
  Serious: No
  Sender: ASTRAZENECA
  Company Number: 2024A117831

PATIENT
  Age: 20862 Day
  Sex: Female

DRUGS (2)
  1. BYDUREON BCISE [Suspect]
     Active Substance: EXENATIDE
     Indication: Type 2 diabetes mellitus
     Dates: start: 2018
  2. BYDUREON [Suspect]
     Active Substance: EXENATIDE

REACTIONS (5)
  - Injection site haemorrhage [Unknown]
  - Incorrect dose administered by device [Unknown]
  - Wrong technique in device usage process [Unknown]
  - Underdose [Unknown]
  - Device defective [Unknown]

NARRATIVE: CASE EVENT DATE: 20240428
